FAERS Safety Report 14361278 (Version 1)
Quarter: 2018Q1

REPORT INFORMATION
  Report Type: Spontaneous
  Country: GB (occurrence: GB)
  Receive Date: 20180108
  Receipt Date: 20180108
  Transmission Date: 20180509
  Serious: Yes (Other)
  Sender: FDA-Public Use
  Company Number: PHHY2018GB000923

PATIENT
  Age: 64 Year
  Sex: Male

DRUGS (1)
  1. ITRACONAZOLE SANDOZ [Suspect]
     Active Substance: ITRACONAZOLE
     Indication: PRODUCT USED FOR UNKNOWN INDICATION
     Route: 065

REACTIONS (3)
  - Ejection fraction decreased [Unknown]
  - Left ventricular dysfunction [Unknown]
  - Pericarditis [Unknown]
